FAERS Safety Report 5786408-0 (Version None)
Quarter: 2008Q2

REPORT INFORMATION
  Report Type: 
  Country: None (occurrence: None)
  Receive Date: 20080624
  Receipt Date: 20080612
  Transmission Date: 20081010
  Serious: Yes (Hospitalization, Other)
  Sender: FDA-Public Use
  Company Number: BR-PFIZER INC-2008020514

PATIENT
  Weight: 66 kg

DRUGS (8)
  1. CHANTIX [Suspect]
     Indication: TOBACCO USER
     Route: 048
     Dates: start: 20071207, end: 20080327
  2. METICORTEN [Concomitant]
  3. LOSARTAN POTASSIUM [Concomitant]
  4. COMBIVENT [Concomitant]
  5. FORASEQ [Concomitant]
  6. ALL OTHER THERAPEUTIC PRODUCTS [Concomitant]
  7. ALPRAZOLAM [Concomitant]
     Dates: start: 20071101
  8. ALL OTHER THERAPEUTIC PRODUCTS [Concomitant]

REACTIONS (3)
  - ANOSMIA [None]
  - BLOOD PRESSURE DECREASED [None]
  - VISUAL ACUITY REDUCED [None]
